FAERS Safety Report 20394501 (Version 1)
Quarter: 2022Q1

REPORT INFORMATION
  Report Type: Report from Study
  Country: CO (occurrence: CO)
  Receive Date: 20220129
  Receipt Date: 20220129
  Transmission Date: 20220423
  Serious: Yes (Other)
  Sender: FDA-Public Use
  Company Number: CO-NOVARTISPH-NVSC2022CO015094

PATIENT
  Sex: Female
  Weight: 80 kg

DRUGS (4)
  1. LOSARTAN [Suspect]
     Active Substance: LOSARTAN
     Indication: Hypertension
     Dosage: 50 MG, Q12H
     Route: 048
  2. KISQALI [Suspect]
     Active Substance: RIBOCICLIB
     Indication: Product used for unknown indication
     Dosage: UNK
     Route: 065
     Dates: start: 202111, end: 20211201
  3. KISQALI [Suspect]
     Active Substance: RIBOCICLIB
     Dosage: UNK
     Route: 065
     Dates: start: 20220117
  4. CARVEDILOL [Concomitant]
     Active Substance: CARVEDILOL
     Indication: Product used for unknown indication
     Dosage: 25 MG, 24 HOURS
     Route: 048

REACTIONS (9)
  - Metastases to bone [Unknown]
  - Metastases to lung [Unknown]
  - Dyspnoea [Unknown]
  - Pleural effusion [Unknown]
  - Pain [Unknown]
  - Hypotension [Unknown]
  - Radiation injury [Unknown]
  - Throat irritation [Recovered/Resolved]
  - Off label use [Unknown]
